FAERS Safety Report 9803960 (Version 1)
Quarter: 2014Q1

REPORT INFORMATION
  Report Type: Spontaneous
  Country: US (occurrence: US)
  Receive Date: 20140108
  Receipt Date: 20140108
  Transmission Date: 20141002
  Serious: No
  Sender: FDA-Public Use
  Company Number: US-009507513-1401USA002515

PATIENT
  Age: 30 Year
  Sex: Female

DRUGS (6)
  1. CLARITIN-D-24 [Suspect]
     Indication: RHINORRHOEA
     Dosage: 10 MG, BID
     Route: 048
  2. CLARITIN-D-24 [Suspect]
     Indication: EYE PRURITUS
  3. CLARITIN-D-24 [Suspect]
     Indication: THROAT IRRITATION
  4. CLARITIN-D-24 [Suspect]
     Indication: SNEEZING
  5. CLARITIN-D-24 [Suspect]
     Indication: PARANASAL SINUS HYPERSECRETION
  6. CLARITIN-D-24 [Suspect]
     Indication: FATIGUE

REACTIONS (5)
  - Malaise [Unknown]
  - Overdose [Unknown]
  - Inappropriate schedule of drug administration [Unknown]
  - Drug effect delayed [Unknown]
  - Drug ineffective for unapproved indication [Unknown]
